FAERS Safety Report 7878337-3 (Version None)
Quarter: 2011Q4

REPORT INFORMATION
  Report Type: 
  Country: None (occurrence: None)
  Receive Date: 20111101
  Receipt Date: 20111020
  Transmission Date: 20120403
  Serious: Yes (Hospitalization)
  Sender: FDA-Public Use
  Company Number: GR-JNJFOC-20111011440

PATIENT
  Age: 60 Year
  Sex: Female

DRUGS (3)
  1. INFLIXIMAB, RECOMBINANT [Suspect]
     Indication: PYODERMA GANGRENOSUM
     Route: 042
  2. AZATHIOPRINE [Concomitant]
     Indication: COLITIS ULCERATIVE
  3. METHYLPREDNISOLONE [Concomitant]
     Indication: COLITIS ULCERATIVE

REACTIONS (1)
  - ATYPICAL MYCOBACTERIAL INFECTION [None]
